FAERS Safety Report 4996161-6 (Version None)
Quarter: 2006Q2

REPORT INFORMATION
  Report Type: 
  Country: None (occurrence: None)
  Receive Date: 20060504
  Receipt Date: 20060421
  Transmission Date: 20061013
  Serious: Yes (Hospitalization)
  Sender: FDA-Public Use
  Company Number: US017276

PATIENT
  Age: 34 Year
  Sex: Male

DRUGS (5)
  1. TRISENOX [Suspect]
     Indication: ACUTE PROMYELOCYTIC LEUKAEMIA
     Dosage: 14.55 MG QD INTRAVENOUS DRIP
     Route: 041
     Dates: start: 20060113, end: 20060113
  2. IDARUBICIN HCL [Suspect]
     Dosage: 25 MG QD INTRAVENOUS DRIP
     Route: 041
     Dates: start: 20060126, end: 20060127
  3. DANAPAROID SODIUM [Concomitant]
  4. LAFUTIDINE [Concomitant]
  5. FLUCONAZOLE [Concomitant]

REACTIONS (1)
  - LEUKOPENIA [None]
